FAERS Safety Report 9362836 (Version 1)
Quarter: 2013Q2

REPORT INFORMATION
  Report Type: Spontaneous
  Country: US (occurrence: US)
  Receive Date: 20130624
  Receipt Date: 20130624
  Transmission Date: 20140414
  Serious: No
  Sender: FDA-Public Use
  Company Number: US-009507513-1306USA009182

PATIENT
  Sex: Male

DRUGS (4)
  1. ASMANEX TWISTHALER [Suspect]
     Indication: CHRONIC OBSTRUCTIVE PULMONARY DISEASE
     Dosage: 2 PUFFS, DAILY
     Route: 055
     Dates: start: 20130528
  2. HYDROCHLOROTHIAZIDE [Concomitant]
  3. PHENOBARBITAL [Concomitant]
  4. VITAMINS (UNSPECIFIED) [Concomitant]

REACTIONS (3)
  - Cough [Recovering/Resolving]
  - Drug dose omission [Unknown]
  - Device malfunction [Unknown]
